FAERS Safety Report 16343148 (Version 1)
Quarter: 2019Q3

REPORT INFORMATION
  Report Type: Spontaneous
  Country: US (occurrence: US)
  Receive Date: 20190521
  Receipt Date: 20190521
  Transmission Date: 20191004
  Serious: Yes (Other)
  Sender: FDA-Public Use
  Company Number: None

PATIENT
  Age: 59 Year
  Sex: Female

DRUGS (6)
  1. TRANSDERM SCOP [Suspect]
     Active Substance: SCOPOLAMINE
     Indication: PROPHYLAXIS AGAINST MOTION SICKNESS
     Dosage: TRANSDERMAL 3 PATCH(ES); 1PATC EVERY 3 DAYS;?
     Route: 062
     Dates: start: 20190507, end: 20190516
  2. CALCIUM [Concomitant]
     Active Substance: CALCIUM
  3. FISH OIL [Concomitant]
     Active Substance: FISH OIL
  4. VITAMIN SUPPLEMENT [Concomitant]
     Active Substance: VITAMINS
  5. VITAMIN D [Concomitant]
     Active Substance: VITAMIN D NOS
  6. GLUCOSAMINE CHONDROITIN [Concomitant]
     Active Substance: CHONDROITIN SULFATE (BOVINE)\GLUCOSAMINE HYDROCHLORIDE

REACTIONS (14)
  - Stress [None]
  - Drug withdrawal syndrome [None]
  - Asthenia [None]
  - Hypohidrosis [None]
  - Dry mouth [None]
  - Confusional state [None]
  - Toxicity to various agents [None]
  - Amnesia [None]
  - Thinking abnormal [None]
  - Malaise [None]
  - Dizziness [None]
  - Gait disturbance [None]
  - Hypersomnia [None]
  - Aphasia [None]

NARRATIVE: CASE EVENT DATE: 20190516
